FAERS Safety Report 4818030-4 (Version None)
Quarter: 2005Q4

REPORT INFORMATION
  Report Type: 
  Country: None (occurrence: None)
  Receive Date: 20051102
  Receipt Date: 20051021
  Transmission Date: 20060501
  Serious: Yes (Hospitalization)
  Sender: FDA-Public Use
  Company Number: CH-BRISTOL-MYERS SQUIBB COMPANY-13162425

PATIENT
  Age: 60 Year
  Sex: Male

DRUGS (2)
  1. ERBITUX [Suspect]
     Indication: COLON CANCER
  2. CAMPTOSAR [Suspect]
     Indication: COLON CANCER

REACTIONS (4)
  - ANAEMIA [None]
  - NEUTROPENIA [None]
  - SHOCK [None]
  - THROMBOCYTOPENIA [None]
